FAERS Safety Report 24353149 (Version 3)
Quarter: 2025Q1

REPORT INFORMATION
  Report Type: Spontaneous
  Country: CA (occurrence: CA)
  Receive Date: 20240923
  Receipt Date: 20250109
  Transmission Date: 20250409
  Serious: Yes (Other)
  Sender: PFIZER
  Company Number: CA-PFIZER INC-202400259722

PATIENT
  Age: 6 Year
  Sex: Male

DRUGS (3)
  1. METHOTREXATE SODIUM [Suspect]
     Active Substance: METHOTREXATE SODIUM
     Indication: B precursor type acute leukaemia
     Route: 037
  2. METHOTREXATE SODIUM [Suspect]
     Active Substance: METHOTREXATE SODIUM
     Indication: B precursor type acute leukaemia
     Route: 048
  3. METHOTREXATE SODIUM [Suspect]
     Active Substance: METHOTREXATE SODIUM
     Indication: B precursor type acute leukaemia
     Route: 042

REACTIONS (4)
  - Neurotoxicity [Recovering/Resolving]
  - Confusional state [Recovering/Resolving]
  - Lennox-Gastaut syndrome [Recovering/Resolving]
  - Intellectual disability [Recovering/Resolving]
